FAERS Safety Report 6862256-5 (Version None)
Quarter: 2010Q2

REPORT INFORMATION
  Report Type: 
  Country: None (occurrence: None)
  Receive Date: 20100518
  Receipt Date: 20100412
  Transmission Date: 20101027
  Serious: Yes (Other)
  Sender: FDA-Public Use
  Company Number: AUR-APL-2010-01139

PATIENT
  Age: 68 Year
  Sex: Female

DRUGS (3)
  1. AMLODIPINE BESYLATE [Suspect]
     Dosage: 10MG
  2. HYDROCHLOROTHIAZIDE [Suspect]
     Dosage: 25MG
  3. LIPITOR [Suspect]
     Dosage: 10MG

REACTIONS (1)
  - MUSCLE SPASMS [None]
